FAERS Safety Report 9310737 (Version 2)
Quarter: 2013Q3

REPORT INFORMATION
  Report Type: Spontaneous
  Country: IT (occurrence: IT)
  Receive Date: 20130528
  Receipt Date: 20130709
  Transmission Date: 20140515
  Serious: Yes (Hospitalization)
  Sender: FDA-Public Use
  Company Number: IT-009507513-1305ITA013409

PATIENT
  Age: 57 Year
  Sex: Female

DRUGS (6)
  1. REBETOL [Suspect]
     Indication: CHRONIC HEPATITIS C
     Dosage: DAILY DOSE 1200 MG
     Route: 048
     Dates: start: 20120402, end: 20120905
  2. REBETOL [Suspect]
     Dosage: DAILY DOSE 1000 MG
     Route: 048
     Dates: start: 20120905, end: 20121031
  3. REBETOL [Suspect]
     Dosage: DAILY DOSE 800 MG
     Route: 048
     Dates: start: 20121031
  4. PEGASYS [Suspect]
     Indication: CHRONIC HEPATITIS C
     Dosage: 180 MICROGRAM, QW
     Dates: start: 20120402, end: 20120905
  5. PEGASYS [Suspect]
     Dosage: 180 MICROGRAM, QW
     Dates: start: 20120905
  6. ZESTRIL [Concomitant]
     Dosage: UNK
     Dates: start: 20070101

REACTIONS (3)
  - Interstitial lung disease [Recovering/Resolving]
  - Neutropenia [Recovering/Resolving]
  - Pruritus [Unknown]
